FAERS Safety Report 24786473 (Version 1)
Quarter: 2024Q4

REPORT INFORMATION
  Report Type: Spontaneous
  Country: US (occurrence: US)
  Receive Date: 20241230
  Receipt Date: 20241230
  Transmission Date: 20250114
  Serious: No
  Sender: BIOGEN
  Company Number: US-BIOGEN-2019BI00783331

PATIENT
  Sex: Female

DRUGS (1)
  1. TYSABRI [Suspect]
     Active Substance: NATALIZUMAB
     Indication: Multiple sclerosis
     Dosage: INFUSED OVER 1 HOUR
     Route: 050
     Dates: start: 20180606

REACTIONS (5)
  - Photosensitivity reaction [Unknown]
  - Vision blurred [Unknown]
  - Balance disorder [Unknown]
  - Urinary retention [Unknown]
  - Micturition urgency [Unknown]
